FAERS Safety Report 7705165-1 (Version None)
Quarter: 2011Q3

REPORT INFORMATION
  Report Type: 
  Country: None (occurrence: None)
  Receive Date: 20110824
  Receipt Date: 20000510
  Transmission Date: 20111222
  Serious: No
  Sender: FDA-Public Use
  Company Number: 137749

PATIENT
  Age: 33 Year
  Sex: Female
  Weight: 52 kg

DRUGS (1)
  1. AVONEX [Suspect]
     Indication: MULTIPLE SCLEROSIS
     Route: 030
     Dates: start: 19990201, end: 20000201

REACTIONS (2)
  - INFLUENZA [None]
  - BLOOD TEST [None]
